FAERS Safety Report 9291460 (Version 1)
Quarter: 2013Q2

REPORT INFORMATION
  Report Type: Spontaneous
  Country: US (occurrence: US)
  Receive Date: 20130515
  Receipt Date: 20130515
  Transmission Date: 20140414
  Serious: No
  Sender: FDA-Public Use
  Company Number: US-BAUSCH-BL-2013-000673

PATIENT
  Age: 71 Year
  Sex: Female

DRUGS (3)
  1. BROMDAY 0.09% [Suspect]
     Indication: CATARACT OPERATION
     Route: 047
     Dates: start: 20120121, end: 20120123
  2. ZYMAXID (GATIFLOXACIN OPHTHALMIC SOLUTION) 0.5% [Concomitant]
     Indication: CATARACT OPERATION
     Route: 047
     Dates: start: 20120123, end: 20120210
  3. PRED FORTE [Concomitant]
     Indication: CATARACT OPERATION
     Route: 047
     Dates: start: 20120123, end: 20120210

REACTIONS (8)
  - Headache [Recovered/Resolved]
  - Disorientation [Recovered/Resolved]
  - Dizziness [Recovered/Resolved]
  - Dyspnoea [Recovered/Resolved]
  - Presyncope [Recovered/Resolved]
  - Palpitations [Recovered/Resolved]
  - Vision blurred [Recovered/Resolved]
  - Eye pain [Recovered/Resolved]
